FAERS Safety Report 6842281-0 (Version None)
Quarter: 2010Q3

REPORT INFORMATION
  Report Type: 
  Country: None (occurrence: None)
  Receive Date: 20100714
  Receipt Date: 20070724
  Transmission Date: 20110219
  Serious: No
  Sender: FDA-Public Use
  Company Number: US-PFIZER INC-2007062999

PATIENT
  Age: 59 Year
  Sex: Female
  Weight: 68.2 kg

DRUGS (2)
  1. CHANTIX [Suspect]
     Indication: SMOKING CESSATION THERAPY
     Route: 048
     Dates: start: 20070101
  2. WELLBUTRIN [Concomitant]
     Indication: EX-TOBACCO USER
     Dates: start: 19970101

REACTIONS (3)
  - ANXIETY [None]
  - IMPATIENCE [None]
  - WEIGHT INCREASED [None]
